FAERS Safety Report 20367764 (Version 2)
Quarter: 2025Q3

REPORT INFORMATION
  Report Type: Spontaneous
  Country: EU (occurrence: EU)
  Receive Date: 20220124
  Receipt Date: 20250906
  Transmission Date: 20251021
  Serious: Yes (Disabling)
  Sender: AUROBINDO
  Company Number: EU-JNJFOC-20220103253

PATIENT
  Age: 19 Year

DRUGS (2)
  1. CLOZAPINE [Suspect]
     Active Substance: CLOZAPINE
     Indication: Product used for unknown indication
     Dosage: 200 MILLIGRAM, ONCE A DAY
     Route: 065
  2. PALIPERIDONE PALMITATE [Suspect]
     Active Substance: PALIPERIDONE PALMITATE
     Indication: Schizophrenia
     Route: 030

REACTIONS (1)
  - Pleurothotonus [Recovered/Resolved]
